FAERS Safety Report 17654798 (Version 5)
Quarter: 2021Q2

REPORT INFORMATION
  Report Type: Spontaneous
  Country: US (occurrence: US)
  Receive Date: 20200410
  Receipt Date: 20210513
  Transmission Date: 20210716
  Serious: Yes (Hospitalization)
  Sender: FDA-Public Use
  Company Number: US-UNITED THERAPEUTICS-UNT-2020-005255

PATIENT
  Age: 46 Year
  Sex: Female
  Weight: 62.59 kg

DRUGS (32)
  1. REMODULIN [Suspect]
     Active Substance: TREPROSTINIL
     Indication: PULMONARY ARTERIAL HYPERTENSION
     Dosage: UNK, CONTINUING
     Route: 041
     Dates: start: 20191007
  2. FLUTICASONE PROPIONATE. [Concomitant]
     Active Substance: FLUTICASONE PROPIONATE
     Indication: PRODUCT USED FOR UNKNOWN INDICATION
     Dosage: UNK (50 MEG/ACT; 2 SPRAYS DAILY)
     Route: 045
  3. PROAIR HFA [Concomitant]
     Active Substance: ALBUTEROL SULFATE
     Indication: PRODUCT USED FOR UNKNOWN INDICATION
     Dosage: UNK (108(90 BASE; MEG/ACT; 2 PUFFS 4 TIMES DAILY AS NEEDED))
  4. ASPIR LOW [Concomitant]
     Active Substance: ASPIRIN
     Indication: ANTICOAGULANT THERAPY
     Dosage: 81 MG, QD (DAILY), TABLET BY MOUTH DAILY
     Route: 048
  5. ATORVASTATIN [Concomitant]
     Active Substance: ATORVASTATIN
     Indication: PRODUCT USED FOR UNKNOWN INDICATION
     Dosage: 10 MG, QD (DAILY), 1 TAB BY MOUTH DAILY
     Route: 048
  6. FUROSEMIDE. [Concomitant]
     Active Substance: FUROSEMIDE
     Indication: OLIGURIA
     Dosage: 40 MG, PRN; 1 TABLET BY MOUTH AS NEEDED
     Route: 048
  7. METOPROLOL SUCCINATE. [Concomitant]
     Active Substance: METOPROLOL SUCCINATE
     Indication: CARDIOMYOPATHY
     Dosage: 0.5 TABLETS BY MOUTH DAILY
     Route: 048
  8. MONTELUKAST [Concomitant]
     Active Substance: MONTELUKAST SODIUM
     Indication: ASTHMA
     Dosage: 10 MG, QD; 1 TABLET BY MOUTH DAILY
     Route: 048
  9. REMODULIN [Suspect]
     Active Substance: TREPROSTINIL
     Dosage: 0.08 ?G/KG, CONTINUING
     Route: 041
     Dates: start: 20200703
  10. IPRATROPIUM/ALBUTEROL [Concomitant]
     Active Substance: ALBUTEROL\IPRATROPIUM
     Indication: PRODUCT USED FOR UNKNOWN INDICATION
     Dosage: UNK (0.5?2.5 (3) MG/3ML; INHALE CONTENT OF 1 VIAL EVERY 6 HOURS IF NEEDED)
  11. REMODULIN [Suspect]
     Active Substance: TREPROSTINIL
     Dosage: 0.094 ?G/KG, CONTINUING
     Route: 041
  12. LETAIRIS [Suspect]
     Active Substance: AMBRISENTAN
     Indication: PULMONARY HYPERTENSION
     Dosage: 10 MG TABLET, 1 TAB DAILY
     Route: 048
  13. CLARITIN [Concomitant]
     Active Substance: LORATADINE
     Indication: PRODUCT USED FOR UNKNOWN INDICATION
     Dosage: 10 MG, QD, 1 TAB DAILY
     Route: 048
  14. PLAVIX [Concomitant]
     Active Substance: CLOPIDOGREL BISULFATE
     Indication: PRODUCT USED FOR UNKNOWN INDICATION
     Dosage: 75 MG, QD (DAILY), 1 TAB BY MOUTH DAILY
     Route: 048
  15. REMODULIN [Suspect]
     Active Substance: TREPROSTINIL
     Indication: PULMONARY ARTERIAL HYPERTENSION
     Dosage: 0.094 ?G/KG, CONTINUING
     Route: 058
  16. REMODULIN [Suspect]
     Active Substance: TREPROSTINIL
     Indication: PULMONARY ARTERIAL HYPERTENSION
     Dosage: UNK, CONTINUING
     Route: 041
     Dates: start: 20180123
  17. SYMBICORT [Concomitant]
     Active Substance: BUDESONIDE\FORMOTEROL FUMARATE DIHYDRATE
     Dosage: UNK (160 2 PUFFS BID)
  18. BUDESONIDE. [Concomitant]
     Active Substance: BUDESONIDE
     Dosage: UNK (NEBULIZER BID)
  19. REMODULIN [Suspect]
     Active Substance: TREPROSTINIL
     Dosage: UNK, CONTINUING
     Route: 058
     Dates: start: 20160525
  20. REMODULIN [Suspect]
     Active Substance: TREPROSTINIL
     Dosage: UNK, CONTINUING
     Route: 058
     Dates: start: 20191008
  21. REMODULIN [Suspect]
     Active Substance: TREPROSTINIL
     Dosage: UNK, CONTINUING
     Route: 058
     Dates: end: 20200703
  22. CLONAZEPAM. [Concomitant]
     Active Substance: CLONAZEPAM
     Indication: ANXIETY
     Dosage: 1 TAB BY MOUTH 2 TIMES DAILY AS NEEDED
     Route: 048
  23. BUDESONIDE. [Concomitant]
     Active Substance: BUDESONIDE
     Indication: PRODUCT USED FOR UNKNOWN INDICATION
     Dosage: 2 ML, QD (0.5 MG/2 ML SUSPENSION NEBULIZER SOLUTION)
  24. GABAPENTIN. [Concomitant]
     Active Substance: GABAPENTIN
     Indication: INJECTION SITE PAIN
     Dosage: 300 MG, BID;1 CAPSULE BY MOUTH TWICE A DAY
     Route: 048
  25. SPIRONOLACTONE. [Concomitant]
     Active Substance: SPIRONOLACTONE
     Indication: OLIGURIA
     Dosage: 2 TABLETS BY MOUTH DAILY
     Route: 048
  26. ADCIRCA [Concomitant]
     Active Substance: TADALAFIL
     Indication: PRODUCT USED FOR UNKNOWN INDICATION
     Dosage: 2 TABS DAILY
     Route: 048
  27. ALBUTEROL SULFATE. [Concomitant]
     Active Substance: ALBUTEROL SULFATE
     Indication: ASTHMA
     Dosage: UNK (108 (90 BASE) MEG/ACT;2 ACTUATION 4 TIMES A DAY)
  28. SYMBICORT [Concomitant]
     Active Substance: BUDESONIDE\FORMOTEROL FUMARATE DIHYDRATE
     Indication: PRODUCT USED FOR UNKNOWN INDICATION
     Dosage: UNK, BID
  29. YUPELRI [Concomitant]
     Active Substance: REVEFENACIN
     Indication: ASTHMA
     Dosage: 175 ?G, QD (DAILY; 175 MCG/3ML)
  30. PERFOROMIST [Concomitant]
     Active Substance: FORMOTEROL FUMARATE DIHYDRATE
     Indication: ASTHMA
     Dosage: 2 ML, BID (20 MCG/ 2ML)
  31. MIRENA [Concomitant]
     Active Substance: LEVONORGESTREL
     Indication: PRODUCT USED FOR UNKNOWN INDICATION
     Dosage: UNK, QD; 20 MCG/24HR INTRAUTERINE DEVICE
     Route: 015
  32. REMODULIN [Suspect]
     Active Substance: TREPROSTINIL
     Dosage: UNK, CONTINUING
     Route: 058
     Dates: start: 20191007

REACTIONS (3)
  - COVID-19 [Recovered/Resolved]
  - Weight decreased [Recovering/Resolving]
  - Infusion site pain [Unknown]

NARRATIVE: CASE EVENT DATE: 2020
